FAERS Safety Report 12410818 (Version 1)
Quarter: 2016Q2

REPORT INFORMATION
  Report Type: Spontaneous
  Country: US (occurrence: None)
  Receive Date: 20160526
  Receipt Date: 20160526
  Transmission Date: 20160815
  Serious: Yes (Death)
  Sender: FDA-Public Use
  Company Number: None

PATIENT
  Age: 70 Year
  Sex: Male
  Weight: 115.67 kg

DRUGS (1)
  1. WARFARIN SODIUM GENERIC, 6 MG TARO PHARMACY USA [Suspect]
     Active Substance: WARFARIN SODIUM
     Indication: ANTICOAGULANT THERAPY
     Dosage: 1 TABLET(S) ONE TO TWO TABLETS TAKEN BY MOUTH
     Route: 048
     Dates: start: 20160119, end: 20160204

REACTIONS (5)
  - Headache [None]
  - Incoherent [None]
  - Hypopnoea [None]
  - Unresponsive to stimuli [None]
  - Cerebral haemorrhage [None]

NARRATIVE: CASE EVENT DATE: 20160204
